FAERS Safety Report 4498151-9 (Version None)
Quarter: 2004Q4

REPORT INFORMATION
  Report Type: 
  Country: None (occurrence: None)
  Receive Date: 20041110
  Receipt Date: 20041102
  Transmission Date: 20050328
  Serious: Yes (Death, Hospitalization)
  Sender: FDA-Public Use
  Company Number: FR-MERCK-0411FRA00010

PATIENT
  Age: 84 Year
  Sex: Female

DRUGS (8)
  1. ZOCOR [Suspect]
     Route: 048
  2. AMIODARONE HYDROCHLORIDE [Suspect]
     Route: 048
  3. TROXERUTIN [Suspect]
     Route: 048
  4. TRIMETAZIDINE HYDROCHLORIDE [Suspect]
     Route: 048
  5. RANITIDINE HYDROCHLORIDE [Suspect]
     Route: 048
  6. HYDROXYUREA [Suspect]
     Route: 048
  7. QUINAPRIL HYDROCHLORIDE [Concomitant]
     Route: 065
  8. CLOPIDOGREL BISULFATE [Concomitant]
     Route: 048

REACTIONS (2)
  - GENERAL PHYSICAL HEALTH DETERIORATION [None]
  - INTERSTITIAL LUNG DISEASE [None]
